FAERS Safety Report 6453384-7 (Version None)
Quarter: 2009Q4

REPORT INFORMATION
  Report Type: 
  Country: None (occurrence: None)
  Receive Date: 20091124
  Receipt Date: 20091030
  Transmission Date: 20100525
  Serious: No
  Sender: FDA-Public Use
  Company Number: FR-ROCHE-666892

PATIENT
  Age: 32 Year
  Sex: Female

DRUGS (4)
  1. TAMIFLU [Suspect]
     Dosage: 75 MG IN MORNING AND 75 MG IN EVENING
     Route: 065
  2. TAMIFLU [Suspect]
     Dosage: DOSE INCREASED
     Route: 065
     Dates: start: 20091028
  3. DOLIPRANE [Concomitant]
  4. VENTOLIN [Concomitant]
     Indication: ASTHMA

REACTIONS (2)
  - OVERDOSE [None]
  - PAINFUL RESPIRATION [None]
